FAERS Safety Report 8910451 (Version 1)
Quarter: 2012Q4

REPORT INFORMATION
  Report Type: 
  Country: US (occurrence: US)
  Receive Date: 20121114
  Receipt Date: 20121114
  Transmission Date: 20130627
  Serious: No
  Sender: FDA-Public Use
  Company Number: US-009507513-1211USA005394

PATIENT
  Age: 68 Year
  Sex: Female

DRUGS (2)
  1. JANUVIA [Suspect]
     Indication: TYPE 2 DIABETES MELLITUS
     Dosage: 100 mg, Once
     Route: 048
     Dates: start: 20121026, end: 20121108
  2. METFORMIN [Concomitant]
     Dosage: 500 mg, tid

REACTIONS (1)
  - Blood glucose increased [Recovering/Resolving]
